FAERS Safety Report 9009078 (Version 1)
Quarter: 2013Q1

REPORT INFORMATION
  Report Type: Spontaneous
  Country: MX (occurrence: MX)
  Receive Date: 20130111
  Receipt Date: 20130111
  Transmission Date: 20140127
  Serious: Yes (Death, Hospitalization)
  Sender: FDA-Public Use
  Company Number: MX-UCBSA-074707

PATIENT
  Age: 84 Year
  Sex: Female
  Weight: 49 kg

DRUGS (8)
  1. KEPPRA [Suspect]
     Indication: PARTIAL SEIZURES
     Route: 048
     Dates: start: 20110915, end: 20121231
  2. FUROSEMIDE [Concomitant]
     Indication: CARDIAC FAILURE
     Route: 048
     Dates: start: 2006, end: 20121231
  3. OMEPRAZOLE [Concomitant]
     Indication: GASTRITIS PROPHYLAXIS
     Route: 048
     Dates: start: 2006, end: 20121231
  4. CONCOR [Concomitant]
     Indication: HYPERTENSION
     Route: 048
     Dates: start: 2006, end: 20121231
  5. DIGOXIN [Concomitant]
     Indication: CARDIAC FAILURE
     Route: 048
     Dates: start: 2006, end: 20121231
  6. MICARDIS PLUS [Concomitant]
     Indication: HYPERTENSION
     Dosage: 80/12.5 MG
     Route: 048
     Dates: start: 2006, end: 20121231
  7. SPIRONOLACTONE [Concomitant]
     Indication: CARDIAC FAILURE
     Route: 048
     Dates: start: 2006, end: 20121231
  8. WARFARIN [Concomitant]
     Indication: THROMBOSIS PROPHYLAXIS
     Route: 048
     Dates: start: 2006, end: 20121231

REACTIONS (5)
  - Cardio-respiratory arrest [Fatal]
  - Multi-organ failure [Fatal]
  - Weight decreased [Fatal]
  - General physical health deterioration [Fatal]
  - Decreased appetite [Fatal]
